FAERS Safety Report 22075790 (Version 2)
Quarter: 2023Q2

REPORT INFORMATION
  Report Type: Report from Study
  Country: US (occurrence: US)
  Receive Date: 20230308
  Receipt Date: 20230630
  Transmission Date: 20230721
  Serious: Yes (Other)
  Sender: FDA-Public Use
  Company Number: US-JAZZ PHARMACEUTICALS-2023-US-005090

PATIENT
  Age: 28 Year
  Sex: Male

DRUGS (9)
  1. EPIDIOLEX [Suspect]
     Active Substance: CANNABIDIOL
     Indication: Epilepsy
     Dosage: 2.7 MILLILITER, BID
     Route: 048
     Dates: start: 20221229, end: 20230302
  2. EPIDIOLEX [Suspect]
     Active Substance: CANNABIDIOL
     Indication: Seizure
  3. LEVETIRACETAM [Concomitant]
     Active Substance: LEVETIRACETAM
     Indication: Product used for unknown indication
     Dosage: UNK
  4. VIMPAT [Concomitant]
     Active Substance: LACOSAMIDE
     Indication: Product used for unknown indication
     Dosage: UNK
  5. FISH OIL [Concomitant]
     Active Substance: FISH OIL
     Indication: Product used for unknown indication
     Dosage: UNK
  6. LAMICTAL [Concomitant]
     Active Substance: LAMOTRIGINE
     Indication: Product used for unknown indication
     Dosage: UNK
  7. LEVOTHYROXINE [Concomitant]
     Active Substance: LEVOTHYROXINE
     Indication: Product used for unknown indication
     Dosage: UNK
  8. MELATONIN [Concomitant]
     Active Substance: MELATONIN
     Indication: Product used for unknown indication
     Dosage: UNK
  9. SINGULAIR [Concomitant]
     Active Substance: MONTELUKAST SODIUM
     Indication: Product used for unknown indication
     Dosage: UNK

REACTIONS (4)
  - Depressed level of consciousness [Recovered/Resolved]
  - Musculoskeletal stiffness [Recovered/Resolved]
  - Fatigue [Recovered/Resolved]
  - Somnolence [Recovered/Resolved]

NARRATIVE: CASE EVENT DATE: 20230201
